FAERS Safety Report 4504145-7 (Version None)
Quarter: 2004Q4

REPORT INFORMATION
  Report Type: 
  Country: None (occurrence: None)
  Receive Date: 20041118
  Receipt Date: 20040617
  Transmission Date: 20050328
  Serious: Yes (Hospitalization)
  Sender: FDA-Public Use
  Company Number: 200412079JP

PATIENT
  Age: 53 Year
  Sex: Female
  Weight: 43.5 kg

DRUGS (8)
  1. ARAVA [Suspect]
     Route: 048
     Dates: start: 20040511, end: 20040611
  2. METALCAPTASE [Concomitant]
     Indication: MUSCULOSKELETAL PAIN
     Route: 048
  3. PREDNIN [Concomitant]
     Indication: ANTIINFLAMMATORY THERAPY
     Route: 048
  4. FOLIAMIN [Concomitant]
     Indication: PROPHYLAXIS
     Route: 048
  5. VOLTAREN [Concomitant]
     Indication: ANTIINFLAMMATORY THERAPY
     Route: 054
  6. QUESTRAN [Concomitant]
     Route: 048
     Dates: start: 20040617, end: 20040705
  7. PREDONINE [Concomitant]
     Indication: ANTIINFLAMMATORY THERAPY
     Route: 042
     Dates: start: 20040617, end: 20040826
  8. PHYSIOSOL [Concomitant]
     Indication: FLUID REPLACEMENT
     Route: 041
     Dates: start: 20040617, end: 20040706

REACTIONS (19)
  - ALANINE AMINOTRANSFERASE INCREASED [None]
  - ANOREXIA [None]
  - ASPARTATE AMINOTRANSFERASE INCREASED [None]
  - BLOOD ALKALINE PHOSPHATASE INCREASED [None]
  - BLOOD LACTATE DEHYDROGENASE INCREASED [None]
  - BLOOD URINE [None]
  - DEPRESSED LEVEL OF CONSCIOUSNESS [None]
  - DIARRHOEA [None]
  - DISORIENTATION [None]
  - ENTEROCOLITIS [None]
  - GASTROINTESTINAL DISORDER [None]
  - LEUKOPENIA [None]
  - LIVER DISORDER [None]
  - LYMPHOCYTE PERCENTAGE DECREASED [None]
  - MARKEDLY REDUCED DIETARY INTAKE [None]
  - NEUTROPHIL PERCENTAGE INCREASED [None]
  - PLATELET COUNT DECREASED [None]
  - PYREXIA [None]
  - RASH [None]
